FAERS Safety Report 18910867 (Version 1)
Quarter: 2021Q1

REPORT INFORMATION
  Report Type: Report from Study
  Country: AR (occurrence: AR)
  Receive Date: 20210218
  Receipt Date: 20210218
  Transmission Date: 20210420
  Serious: Yes (Other)
  Sender: FDA-Public Use
  Company Number: AR-BRISTOL-MYERS SQUIBB COMPANY-BMS-2021-015445

PATIENT
  Age: 68 Year
  Sex: Male

DRUGS (1)
  1. APIXABAN [Suspect]
     Active Substance: APIXABAN
     Indication: CEREBROVASCULAR ACCIDENT PROPHYLAXIS
     Dosage: 5 MILLIGRAM
     Route: 065
     Dates: start: 20180226

REACTIONS (3)
  - Herpes ophthalmic [Not Recovered/Not Resolved]
  - Optic nerve injury [Unknown]
  - Nervousness [Unknown]

NARRATIVE: CASE EVENT DATE: 20210211
